FAERS Safety Report 9944697 (Version 1)
Quarter: 2014Q1

REPORT INFORMATION
  Report Type: Report from Study
  Country: US (occurrence: US)
  Receive Date: 20140303
  Receipt Date: 20140303
  Transmission Date: 20141002
  Serious: No
  Sender: FDA-Public Use
  Company Number: US-ABBVIE-13P-163-1054983-00

PATIENT
  Age: 55 Year
  Sex: Male

DRUGS (4)
  1. HUMIRA [Suspect]
     Indication: COLITIS ULCERATIVE
     Dates: start: 20130207, end: 20130207
  2. HUMIRA [Suspect]
     Dates: start: 20130221, end: 20130221
  3. HUMIRA [Suspect]
     Dates: start: 20130307
  4. PREDNISONE [Concomitant]
     Indication: COLITIS ULCERATIVE
     Dosage: TAPER CURRENTLY 2.5 MG DAILY

REACTIONS (1)
  - Upper respiratory tract infection [Not Recovered/Not Resolved]
